FAERS Safety Report 4866502-9 (Version None)
Quarter: 2005Q4

REPORT INFORMATION
  Report Type: 
  Country: None (occurrence: None)
  Receive Date: 20051227
  Receipt Date: 20051005
  Transmission Date: 20060501
  Serious: Yes (Hospitalization)
  Sender: FDA-Public Use
  Company Number: US-MERCK-0510USA04105

PATIENT
  Age: 57 Year
  Sex: Female
  Weight: 95 kg

DRUGS (7)
  1. VIOXX [Suspect]
     Indication: PAIN
     Route: 048
     Dates: start: 19990101, end: 20000101
  2. VIOXX [Suspect]
     Route: 048
     Dates: start: 19990101, end: 20000101
  3. PREMARIN [Concomitant]
     Route: 065
  4. ALEVE [Concomitant]
     Route: 065
  5. PLAVIX [Concomitant]
     Route: 065
  6. HYDROCODONE BITARTRATE [Concomitant]
     Route: 065
  7. ATORVASTATIN CALCIUM [Concomitant]
     Route: 065

REACTIONS (7)
  - ARTERIAL OCCLUSIVE DISEASE [None]
  - CARDIOVASCULAR DISORDER [None]
  - CAROTID ARTERY OCCLUSION [None]
  - CORONARY ARTERY OCCLUSION [None]
  - JOINT DISLOCATION [None]
  - OSTEONECROSIS [None]
  - PAIN IN EXTREMITY [None]
